FAERS Safety Report 20291562 (Version 1)
Quarter: 2022Q1

REPORT INFORMATION
  Report Type: Spontaneous
  Country: MX (occurrence: MX)
  Receive Date: 20220104
  Receipt Date: 20220104
  Transmission Date: 20220423
  Serious: Yes (Death, Other)
  Sender: FDA-Public Use
  Company Number: MX-BIOMARINAP-MX-2021-140523

PATIENT
  Age: 22 Year
  Sex: Male

DRUGS (1)
  1. ALDURAZYME [Suspect]
     Active Substance: LARONIDASE
     Indication: Product used for unknown indication
     Dosage: 3 DOSAGE FORM, QW
     Route: 042

REACTIONS (4)
  - Infarction [Fatal]
  - Seizure [Unknown]
  - Aphasia [Unknown]
  - Deafness [Unknown]

NARRATIVE: CASE EVENT DATE: 20210101
